FAERS Safety Report 16571869 (Version 2)
Quarter: 2019Q3

REPORT INFORMATION
  Report Type: Spontaneous
  Country: US (occurrence: US)
  Receive Date: 20190715
  Receipt Date: 20190729
  Transmission Date: 20191004
  Serious: Yes (Hospitalization)
  Sender: FDA-Public Use
  Company Number: US-COVIS PHARMA B.V.-2019COV00157

PATIENT

DRUGS (1)
  1. RILUTEK [Suspect]
     Active Substance: RILUZOLE
     Dosage: UNK

REACTIONS (2)
  - Hospitalisation [Unknown]
  - Gastrointestinal tube insertion [Unknown]
